FAERS Safety Report 8243732-X (Version None)
Quarter: 2012Q1

REPORT INFORMATION
  Report Type: 
  Country: None (occurrence: None)
  Receive Date: 20120329
  Receipt Date: 20110509
  Transmission Date: 20120608
  Serious: No
  Sender: FDA-Public Use
  Company Number: US-MYLANLABS-2011S1009741

PATIENT
  Age: 26 Year
  Sex: Female

DRUGS (1)
  1. EMSAM [Suspect]

REACTIONS (2)
  - AGITATION [None]
  - PANIC ATTACK [None]
